FAERS Safety Report 4413911-8 (Version None)
Quarter: 2004Q3

REPORT INFORMATION
  Report Type: 
  Country: None (occurrence: None)
  Receive Date: 20040729
  Receipt Date: 20040719
  Transmission Date: 20050211
  Serious: Yes (Other)
  Sender: FDA-Public Use
  Company Number: GRWYE912719JUL04

PATIENT
  Age: 49 Year
  Sex: Female

DRUGS (3)
  1. RAPAMUNE [Suspect]
     Indication: RENAL TRANSPLANT
     Dosage: SEE IMAGE
     Route: 048
  2. PREZOLON (PREDNISOLONE) [Concomitant]
  3. CELLCEPT [Concomitant]

REACTIONS (4)
  - BLOOD CREATININE INCREASED [None]
  - BONE MARROW DEPRESSION [None]
  - DERMATITIS ALLERGIC [None]
  - GASTROINTESTINAL DISORDER [None]
